FAERS Safety Report 11044727 (Version 1)
Quarter: 2015Q2

REPORT INFORMATION
  Report Type: Spontaneous
  Country: US (occurrence: None)
  Receive Date: 20150415
  Receipt Date: 20150415
  Transmission Date: 20150821
  Serious: Yes (Other)
  Sender: FDA-Public Use
  Company Number: ADR-2015-00702

PATIENT
  Age: 77 Year
  Sex: Male

DRUGS (26)
  1. LIORESAL [Suspect]
     Active Substance: BACLOFEN
     Indication: MUSCLE SPASTICITY
     Dates: start: 2008, end: 20150322
  2. AMLODIPINE BESYLATE. [Suspect]
     Active Substance: AMLODIPINE BESYLATE
     Indication: HYPERTENSION
  3. PRILOSEC [Suspect]
     Active Substance: OMEPRAZOLE MAGNESIUM
     Indication: GASTROOESOPHAGEAL REFLUX DISEASE
  4. FLU SHOT [Suspect]
     Active Substance: INFLUENZA VIRUS VACCINE
     Dates: start: 20140926
  5. PNEUMONIA VACCINE [Suspect]
     Active Substance: PNEUMOCOCCAL VACCINE POLYVALENT
     Dates: start: 20131029
  6. BACLOFEN. [Suspect]
     Active Substance: BACLOFEN
     Indication: MUSCLE SPASMS
  7. PROSCAR [Suspect]
     Active Substance: FINASTERIDE
     Indication: PROSTATOMEGALY
  8. LOSARTAN [Suspect]
     Active Substance: LOSARTAN
     Indication: HYPERTENSION
  9. MELATONIN [Suspect]
     Active Substance: MELATONIN
     Indication: INSOMNIA
  10. GLUCOSAMINE + CHONDROITIN [Suspect]
     Active Substance: CHONDROITIN SULFATE (BOVINE)\GLUCOSAMINE HYDROCHLORIDE
     Indication: ARTHROPATHY
  11. ASPIRIN. [Suspect]
     Active Substance: ASPIRIN
  12. BRIMONIDINE TARTRATE. [Suspect]
     Active Substance: BRIMONIDINE TARTRATE
     Indication: GLAUCOMA
     Dosage: 1 DROP IN EACH EYE 12N AND 10PM
  13. COSOPT [Suspect]
     Active Substance: DORZOLAMIDE HYDROCHLORIDE\TIMOLOL MALEATE
     Indication: GLAUCOMA
     Dosage: ONE DROP IN EACH EYE AT 7AM AND 5PM
  14. VESICARE [Suspect]
     Active Substance: SOLIFENACIN SUCCINATE
     Indication: HYPERTONIC BLADDER
  15. ATENOLOL. [Suspect]
     Active Substance: ATENOLOL
     Indication: HYPERTENSION
  16. LASIX [Suspect]
     Active Substance: FUROSEMIDE
     Indication: FLUID RETENTION
  17. OXYCODONE AND ACETAMINOPHEN [Suspect]
     Active Substance: ACETAMINOPHEN\OXYCODONE\OXYCODONE HYDROCHLORIDE
     Indication: BACK PAIN
  18. MOBIC [Suspect]
     Active Substance: MELOXICAM
     Indication: ARTHRITIS
  19. SINGULAIR [Suspect]
     Active Substance: MONTELUKAST SODIUM
     Indication: COUGH
  20. KLOR-CON [Suspect]
     Active Substance: POTASSIUM CHLORIDE
     Indication: BLOOD POTASSIUM DECREASED
  21. ZOLPIDEM [Suspect]
     Active Substance: ZOLPIDEM\ZOLPIDEM TARTRATE
     Indication: INSOMNIA
  22. PRAVACHOL [Suspect]
     Active Substance: PRAVASTATIN SODIUM
     Indication: BLOOD CHOLESTEROL INCREASED
  23. MULTI VITAMIN / IRON [Suspect]
     Active Substance: IRON\VITAMINS
  24. MILK OF MAGNESIA [Suspect]
     Active Substance: MAGNESIUM HYDROXIDE
     Indication: CONSTIPATION
  25. MILK OF MAGNESIA [Suspect]
     Active Substance: MAGNESIUM HYDROXIDE
     Indication: PROPHYLAXIS
  26. TDAP VACCINE [Suspect]
     Active Substance: DIPHTHERIA AND TETANUS TOXOIDS AND PERTUSSIS VACCINE
     Dates: start: 20141103

REACTIONS (10)
  - Facial bones fracture [None]
  - Cataract [None]
  - Atrial fibrillation [None]
  - Sleep apnoea syndrome [None]
  - Bronchitis [None]
  - Device battery issue [None]
  - Urinary retention [None]
  - Benign prostatic hyperplasia [None]
  - Fall [None]
  - Clavicle fracture [None]
